FAERS Safety Report 21033499 (Version 1)
Quarter: 2022Q2

REPORT INFORMATION
  Report Type: Spontaneous
  Country: US (occurrence: None)
  Receive Date: 20220630
  Receipt Date: 20220630
  Transmission Date: 20220721
  Serious: Yes (unspecified)
  Sender: FDA-Public Use
  Company Number: None

PATIENT
  Age: 37 Year
  Sex: Female
  Weight: 64 kg

DRUGS (4)
  1. VENOFER [Suspect]
     Active Substance: IRON SUCROSE
     Indication: Iron deficiency anaemia
     Dosage: FREQUENCY : ONCE;?
     Route: 041
     Dates: start: 20220629, end: 20220629
  2. Diphenhydramine 25 mg IVP [Concomitant]
     Dates: start: 20220629, end: 20220629
  3. Hydrocortisone 100 mg IVP [Concomitant]
     Dates: start: 20220629, end: 20220629
  4. EPIPEN [Concomitant]
     Active Substance: EPINEPHRINE
     Dates: start: 20220629, end: 20220629

REACTIONS (4)
  - Infusion related reaction [None]
  - Urticaria [None]
  - Dyspnoea [None]
  - Abdominal pain upper [None]

NARRATIVE: CASE EVENT DATE: 20220629
